FAERS Safety Report 6072971-1 (Version None)
Quarter: 2009Q1

REPORT INFORMATION
  Report Type: 
  Country: None (occurrence: None)
  Receive Date: 20090206
  Receipt Date: 20090129
  Transmission Date: 20090719
  Serious: Yes (Death)
  Sender: FDA-Public Use
  Company Number: TPA2009A00153

PATIENT
  Age: 44 Year
  Sex: Male

DRUGS (4)
  1. ACTOS [Suspect]
     Dosage: PER ORAL
     Route: 048
  2. LISINOPRIL [Suspect]
  3. METFORMIN HCL [Suspect]
  4. GLIPIZIDE [Suspect]

REACTIONS (1)
  - COMPLETED SUICIDE [None]
